FAERS Safety Report 23062888 (Version 1)
Quarter: 2023Q4

REPORT INFORMATION
  Report Type: Spontaneous
  Country: US (occurrence: None)
  Receive Date: 20231012
  Receipt Date: 20231012
  Transmission Date: 20240109
  Serious: No
  Sender: FDA-Public Use
  Company Number: None

PATIENT
  Age: 59 Year
  Sex: Male
  Weight: 105.75 kg

DRUGS (5)
  1. SILDENAFIL [Suspect]
     Active Substance: SILDENAFIL
     Indication: Erectile dysfunction
     Dosage: OTHER QUANTITY : 1 CAPSULE(S);?FREQUENCY : AS NEEDED;?
     Route: 060
     Dates: start: 20230701, end: 20230805
  2. Toprol xl 25 mg [Concomitant]
  3. CRESTOR [Concomitant]
     Active Substance: ROSUVASTATIN CALCIUM
  4. TADALAFIL [Suspect]
     Active Substance: TADALAFIL
  5. APOMORPHINE [Suspect]
     Active Substance: APOMORPHINE

REACTIONS (3)
  - Therapeutic response unexpected [None]
  - Product packaging issue [None]
  - Product appearance confusion [None]

NARRATIVE: CASE EVENT DATE: 20230805
